FAERS Safety Report 8972104 (Version 1)
Quarter: 2012Q4

REPORT INFORMATION
  Report Type: 
  Country: PL (occurrence: PL)
  Receive Date: 20121218
  Receipt Date: 20121218
  Transmission Date: 20130627
  Serious: Yes (Death, Other)
  Sender: FDA-Public Use
  Company Number: PL-JNJFOC-20121201138

PATIENT
  Age: 76 Year
  Sex: Female

DRUGS (5)
  1. RISPOLEPT CONSTA [Suspect]
     Indication: BIPOLAR DISORDER
     Route: 030
     Dates: start: 20121013, end: 20121014
  2. RISPOLEPT [Suspect]
     Indication: BIPOLAR DISORDER
     Route: 048
     Dates: end: 20121027
  3. RISPOLEPT [Suspect]
     Indication: BIPOLAR DISORDER
     Dosage: 1mg to 1,75mg over the course of 4 months
     Route: 048
     Dates: start: 20120706
  4. LISINOPRIL [Suspect]
     Indication: HYPERTENSION
     Route: 065
     Dates: start: 20121013
  5. NEBIVOLOL [Suspect]
     Indication: HYPERTENSION
     Route: 065
     Dates: start: 20121013

REACTIONS (9)
  - Death [Fatal]
  - Hypotension [Unknown]
  - Heart rate decreased [Unknown]
  - Blood pressure increased [Recovered/Resolved]
  - Functional gastrointestinal disorder [Unknown]
  - Pollakiuria [Unknown]
  - Somnolence [Unknown]
  - Drug dose omission [Unknown]
  - Off label use [Unknown]
